FAERS Safety Report 8614443 (Version 3)
Quarter: 2014Q1

REPORT INFORMATION
  Report Type: Spontaneous
  Country: US (occurrence: US)
  Receive Date: 20120614
  Receipt Date: 20140113
  Transmission Date: 20141002
  Serious: Yes (Other)
  Sender: FDA-Public Use
  Company Number: US-ASTRAZENECA-2012SE35394

PATIENT
  Age: 70 Year
  Sex: Female

DRUGS (10)
  1. NEXIUM [Suspect]
     Route: 048
  2. NEXIUM [Suspect]
     Route: 048
     Dates: start: 20070103
  3. OMEPRAZOLE/PRILOSEC [Suspect]
     Indication: BONE DISORDER
     Route: 048
  4. OMEPRAZOLE/PRILOSEC [Suspect]
     Indication: BONE DISORDER
     Route: 048
     Dates: start: 20070131
  5. OMEPRAZOLE/PRILOSEC [Suspect]
     Indication: BONE DISORDER
     Route: 048
     Dates: start: 20110512
  6. TUMS [Concomitant]
  7. NEURONTIN [Concomitant]
     Route: 048
     Dates: start: 20121101
  8. PLAVIX [Concomitant]
     Route: 048
     Dates: start: 20120622
  9. IMDUR [Concomitant]
     Route: 048
     Dates: start: 20120622
  10. AMBIEN [Concomitant]
     Route: 048
     Dates: start: 20070203

REACTIONS (10)
  - Cervical radiculopathy [Unknown]
  - Cervical spinal stenosis [Unknown]
  - Osteoporosis [Unknown]
  - Back pain [Unknown]
  - Bone disorder [Unknown]
  - Neck pain [Unknown]
  - Multiple fractures [Unknown]
  - Spinal osteoarthritis [Unknown]
  - Osteopenia [Unknown]
  - Neuropathy peripheral [Unknown]
